FAERS Safety Report 4445394-6 (Version None)
Quarter: 2004Q3

REPORT INFORMATION
  Report Type: 
  Country: None (occurrence: None)
  Receive Date: 20040729
  Receipt Date: 20040226
  Transmission Date: 20050211
  Serious: Yes (Death, Life-Threatening, Disabling)
  Sender: FDA-Public Use
  Company Number: 2004UW02848

PATIENT
  Age: 53 Year
  Sex: Female
  Weight: 98.8842 kg

DRUGS (6)
  1. ELAVIL [Suspect]
  2. FLEXERIL [Suspect]
  3. ACETAMINOPHEN [Suspect]
  4. SULFIUM [Concomitant]
  5. NO MATCH [Concomitant]
  6. OMEPRAZOLE [Concomitant]

REACTIONS (3)
  - COMPLETED SUICIDE [None]
  - DEPRESSION [None]
  - MULTIPLE DRUG OVERDOSE [None]
